FAERS Safety Report 24335200 (Version 2)
Quarter: 2025Q3

REPORT INFORMATION
  Report Type: Spontaneous
  Country: US (occurrence: US)
  Receive Date: 20240918
  Receipt Date: 20250813
  Transmission Date: 20251020
  Serious: Yes (Other)
  Sender: SANDOZ
  Company Number: US-MLMSERVICE-20240904-PI183878-00082-1

PATIENT
  Age: 52 Year
  Sex: Female

DRUGS (13)
  1. CARBOPLATIN [Suspect]
     Active Substance: CARBOPLATIN
     Indication: Lung adenocarcinoma stage IV
     Dosage: ONE CYCLE (CYCLE = TREATMENT EVERY 3 WEEKS)
     Route: 065
     Dates: start: 202005, end: 202006
  2. CARBOPLATIN [Suspect]
     Active Substance: CARBOPLATIN
     Indication: Metastases to bone
  3. CARBOPLATIN [Suspect]
     Active Substance: CARBOPLATIN
     Indication: Metastases to liver
  4. PEMETREXED [Suspect]
     Active Substance: PEMETREXED
     Indication: Lung adenocarcinoma stage IV
     Route: 065
     Dates: start: 202005, end: 202007
  5. PEMETREXED [Suspect]
     Active Substance: PEMETREXED
     Indication: Metastases to bone
  6. PEMETREXED [Suspect]
     Active Substance: PEMETREXED
     Indication: Metastases to liver
  7. PEMBROLIZUMAB [Suspect]
     Active Substance: PEMBROLIZUMAB
     Indication: Metastases to liver
     Route: 065
     Dates: start: 202005
  8. PEMBROLIZUMAB [Suspect]
     Active Substance: PEMBROLIZUMAB
     Indication: Lung adenocarcinoma stage IV
  9. PEMBROLIZUMAB [Suspect]
     Active Substance: PEMBROLIZUMAB
     Indication: Metastases to bone
  10. MACITENTAN [Concomitant]
     Active Substance: MACITENTAN
     Indication: Pulmonary arterial hypertension
     Route: 065
     Dates: start: 201412
  11. RIOCIGUAT [Concomitant]
     Active Substance: RIOCIGUAT
     Indication: Lung adenocarcinoma stage IV
     Dosage: 2.5 MG, Q8H
     Route: 065
  12. SELEXIPAG [Concomitant]
     Active Substance: SELEXIPAG
     Indication: Pulmonary arterial hypertension
     Route: 065
  13. SILDENAFIL [Concomitant]
     Active Substance: SILDENAFIL
     Indication: Pulmonary arterial hypertension
     Dosage: 20 MG, Q8H
     Route: 065
     Dates: start: 201412

REACTIONS (6)
  - Pulmonary arterial hypertension [Unknown]
  - Pulmonary veno-occlusive disease [Unknown]
  - Condition aggravated [Unknown]
  - Pancytopenia [Unknown]
  - Dyspnoea [Unknown]
  - Cancer fatigue [Unknown]
